FAERS Safety Report 13050068 (Version 6)
Quarter: 2017Q2

REPORT INFORMATION
  Report Type: Report from Study
  Country: CA (occurrence: CA)
  Receive Date: 20161221
  Receipt Date: 20170627
  Transmission Date: 20170830
  Serious: Yes (Hospitalization, Other)
  Sender: FDA-Public Use
  Company Number: PHHY2016CA157506

PATIENT
  Age: 82 Year
  Sex: Female

DRUGS (8)
  1. DIGOXIN. [Concomitant]
     Active Substance: DIGOXIN
     Indication: PRODUCT USED FOR UNKNOWN INDICATION
     Route: 065
  2. EXJADE [Suspect]
     Active Substance: DEFERASIROX
     Dosage: 1250 MG, UNK
     Route: 048
     Dates: start: 20161112, end: 20161117
  3. EXJADE [Suspect]
     Active Substance: DEFERASIROX
     Dosage: 250 MG, QD
     Route: 048
  4. EXJADE [Suspect]
     Active Substance: DEFERASIROX
     Dosage: 500 MG, QD
     Route: 048
     Dates: start: 20170208
  5. EXJADE [Suspect]
     Active Substance: DEFERASIROX
     Indication: MYELODYSPLASTIC SYNDROME
     Dosage: 750 MG, QD
     Route: 048
     Dates: start: 20161015
  6. EXJADE [Suspect]
     Active Substance: DEFERASIROX
     Dosage: 1000 MG, QD
     Route: 048
  7. EXJADE [Suspect]
     Active Substance: DEFERASIROX
     Dosage: 1250 MG, QD
     Route: 048
     Dates: start: 20170603
  8. ALDACTONE [Concomitant]
     Active Substance: SPIRONOLACTONE
     Indication: PRODUCT USED FOR UNKNOWN INDICATION
     Route: 065

REACTIONS (17)
  - Dyspnoea [Unknown]
  - Abdominal pain [Recovered/Resolved]
  - Asthenia [Unknown]
  - Peripheral swelling [Unknown]
  - Liver disorder [Unknown]
  - Nausea [Unknown]
  - Headache [Unknown]
  - Diarrhoea [Recovered/Resolved]
  - Feeling abnormal [Unknown]
  - Cardiac disorder [Unknown]
  - Nasal congestion [Unknown]
  - Pruritus generalised [Unknown]
  - Malaise [Unknown]
  - Cardiac failure [Unknown]
  - Abdominal discomfort [Unknown]
  - Rash [Unknown]
  - Haemoglobin decreased [Not Recovered/Not Resolved]

NARRATIVE: CASE EVENT DATE: 201610
